FAERS Safety Report 11016695 (Version 2)
Quarter: 2015Q2

REPORT INFORMATION
  Report Type: Spontaneous
  Country: US (occurrence: US)
  Receive Date: 20150412
  Receipt Date: 20150525
  Transmission Date: 20150821
  Serious: No
  Sender: FDA-Public Use
  Company Number: US-JNJFOC-20130615546

PATIENT
  Sex: Female
  Weight: 47.63 kg

DRUGS (1)
  1. ORTHO NOVUM 1/35 [Suspect]
     Active Substance: ETHINYL ESTRADIOL\NORETHINDRONE
     Indication: CONTRACEPTION
     Dosage: 1 TABLET PER DAY
     Route: 048
     Dates: start: 20130616

REACTIONS (1)
  - Adverse event [Unknown]
